FAERS Safety Report 8536644-5 (Version None)
Quarter: 2012Q3

REPORT INFORMATION
  Report Type: 
  Country: None (occurrence: None)
  Receive Date: 20120712
  Receipt Date: 20120705
  Transmission Date: 20120928
  Serious: Yes (Other)
  Sender: FDA-Public Use
  Company Number: DSA_58281_2012

PATIENT
  Sex: Female

DRUGS (7)
  1. XENAZINE [Suspect]
     Indication: DYSTONIA
     Dosage: DF ORAL, 25 MG QD ORAL
     Route: 048
  2. XENAZINE [Suspect]
     Indication: TIC
     Dosage: DF ORAL, 25 MG QD ORAL
     Route: 048
  3. EFFEXOR [Concomitant]
  4. PEPCID [Concomitant]
  5. PLAVIX [Concomitant]
  6. GABAPENTIN [Concomitant]
  7. KLONOPIN [Concomitant]

REACTIONS (5)
  - FALL [None]
  - PARKINSONISM [None]
  - CONFUSIONAL STATE [None]
  - DYSSTASIA [None]
  - MUSCULAR WEAKNESS [None]
